FAERS Safety Report 21692565 (Version 1)
Quarter: 2022Q4

REPORT INFORMATION
  Report Type: Spontaneous
  Country: US (occurrence: US)
  Receive Date: 20221207
  Receipt Date: 20221207
  Transmission Date: 20230113
  Serious: Yes (Other)
  Sender: FDA-Public Use
  Company Number: US-CBL-001516

PATIENT
  Age: 69 Year
  Sex: Female

DRUGS (2)
  1. MYCOPHENOLATE MOFETIL [Suspect]
     Active Substance: MYCOPHENOLATE MOFETIL
     Indication: Retinal vasculitis
     Route: 065
  2. PREDNISONE [Suspect]
     Active Substance: PREDNISONE
     Indication: Retinal vasculitis
     Route: 065

REACTIONS (5)
  - Disease progression [Recovered/Resolved]
  - Retinal vasculitis [Recovered/Resolved]
  - Cold type haemolytic anaemia [Unknown]
  - Monoclonal B-cell lymphocytosis [Unknown]
  - Product use in unapproved indication [Unknown]
